FAERS Safety Report 24393933 (Version 1)
Quarter: 2024Q4

REPORT INFORMATION
  Report Type: Other
  Country: FR (occurrence: FR)
  Receive Date: 20241003
  Receipt Date: 20241003
  Transmission Date: 20250115
  Serious: Yes (Hospitalization, Other)
  Sender: BIONPHARMA
  Company Number: FR-Bion-013956

PATIENT
  Age: 62 Year
  Sex: Female

DRUGS (5)
  1. DEXAMETHASONE [Suspect]
     Active Substance: DEXAMETHASONE
     Indication: Plasma cell myeloma
     Dosage: FIRST-LINE TREATMENT
  2. BORTEZOMIB [Concomitant]
     Active Substance: BORTEZOMIB
     Indication: Plasma cell myeloma
     Dosage: FIRST-LINE TREATMENT
  3. MELPHALAN [Concomitant]
     Active Substance: MELPHALAN
     Indication: Plasma cell myeloma
     Dosage: FIRST-LINE TREATMENT
  4. DARATUMUMAB [Concomitant]
     Active Substance: DARATUMUMAB
     Indication: Plasma cell myeloma
     Dosage: FIRST-LINE TREATMENT
  5. LENALIDOMIDE [Concomitant]
     Active Substance: LENALIDOMIDE
     Indication: Plasma cell myeloma
     Dosage: FIRST-LINE TREATMENT

REACTIONS (1)
  - Posterior reversible encephalopathy syndrome [Recovered/Resolved]
